FAERS Safety Report 4704514-6 (Version None)
Quarter: 2005Q2

REPORT INFORMATION
  Report Type: 
  Country: None (occurrence: None)
  Receive Date: 20050630
  Receipt Date: 20050621
  Transmission Date: 20051028
  Serious: Yes (Hospitalization)
  Sender: FDA-Public Use
  Company Number: US-NOVOPROD-244963

PATIENT
  Age: 59 Year
  Sex: Female
  Weight: 91 kg

DRUGS (5)
  1. NOVOLIN N PENFILL [Suspect]
     Indication: DIABETES MELLITUS INSULIN-DEPENDENT
     Dosage: 10-18  IU, QD + SLIDING SCALE
     Dates: start: 19900101, end: 20050217
  2. NOVOLIN R PENFILL [Suspect]
     Indication: DIABETES MELLITUS INSULIN-DEPENDENT
     Dosage: 10-18 IU, QD + SLIDING SCALE
     Route: 058
     Dates: start: 19900101, end: 20050217
  3. AVAPRO [Concomitant]
     Indication: PROPHYLAXIS
  4. ALLEGRA [Concomitant]
     Indication: MULTIPLE ALLERGIES
  5. HYDROCODONE [Concomitant]
     Indication: MIGRAINE

REACTIONS (5)
  - BLOOD GLUCOSE INCREASED [None]
  - CHOLECYSTITIS INFECTIVE [None]
  - DRUG DOSE OMISSION [None]
  - INCOHERENT [None]
  - LOSS OF CONSCIOUSNESS [None]
